FAERS Safety Report 7883364-6 (Version None)
Quarter: 2011Q4

REPORT INFORMATION
  Report Type: 
  Country: None (occurrence: None)
  Receive Date: 20111102
  Receipt Date: 20111102
  Transmission Date: 20120403
  Serious: Yes (Hospitalization)
  Sender: FDA-Public Use
  Company Number: None

PATIENT
  Age: 89 Year
  Sex: Female
  Weight: 63.5 kg

DRUGS (1)
  1. DENOSUMAB [Suspect]
     Indication: OSTEOPENIA
     Dosage: 120MG
     Route: 042
     Dates: start: 20110808, end: 20110824

REACTIONS (3)
  - ELECTROLYTE IMBALANCE [None]
  - ATRIAL FIBRILLATION [None]
  - HYPOCALCAEMIA [None]
